FAERS Safety Report 4320899-7 (Version None)
Quarter: 2004Q1

REPORT INFORMATION
  Report Type: 
  Country: None (occurrence: None)
  Receive Date: 20040322
  Receipt Date: 20040322
  Transmission Date: 20041129
  Serious: Yes (Other)
  Sender: FDA-Public Use
  Company Number: None

PATIENT
  Age: 72 Year
  Sex: Female

DRUGS (7)
  1. HYDROCHLOROTHIAZIDE 25MG TAB [Suspect]
     Indication: HYPERTENSION
     Dosage: 12.5 MG DAILY ORAL
     Route: 048
     Dates: start: 20040220, end: 20040221
  2. CA ACETATE [Concomitant]
  3. COLCHICINE [Concomitant]
  4. ALLOPURINOL [Concomitant]
  5. PREDNISONE [Concomitant]
  6. LISINOPRIL [Concomitant]
  7. ASPIRIN [Concomitant]

REACTIONS (2)
  - FLUSHING [None]
  - SWELLING FACE [None]
